FAERS Safety Report 9255560 (Version 1)
Quarter: 2013Q2

REPORT INFORMATION
  Report Type: Spontaneous
  Country: US (occurrence: US)
  Receive Date: 20130425
  Receipt Date: 20130425
  Transmission Date: 20140414
  Serious: No
  Sender: FDA-Public Use
  Company Number: US-009507513-1304USA014395

PATIENT
  Age: 64 Year
  Sex: Male
  Weight: 77.98 kg

DRUGS (6)
  1. MEVACOR TABLET [Suspect]
     Indication: BLOOD CHOLESTEROL INCREASED
     Dosage: 20 MG, QD
     Route: 048
  2. COLCRYS [Interacting]
     Indication: CHONDROCALCINOSIS PYROPHOSPHATE
     Dosage: 0.6 MG, QD
     Route: 048
     Dates: start: 201210
  3. LISINOPRIL [Concomitant]
     Dosage: UNK
  4. DICLOFENAC [Concomitant]
     Indication: INFLAMMATION
     Dosage: 75 MG, BID
     Route: 048
  5. CYMBALTA [Concomitant]
     Indication: PAIN
     Dosage: 20 MG, BID
     Route: 048
  6. MONTELUKAST SODIUM [Concomitant]
     Indication: ASTHMA
     Dosage: UNK

REACTIONS (3)
  - Chondrocalcinosis pyrophosphate [Not Recovered/Not Resolved]
  - Drug interaction [Not Recovered/Not Resolved]
  - Drug ineffective for unapproved indication [Not Recovered/Not Resolved]
